FAERS Safety Report 21045411 (Version 3)
Quarter: 2022Q3

REPORT INFORMATION
  Report Type: Report from Study
  Country: GR (occurrence: GR)
  Receive Date: 20220706
  Receipt Date: 20220718
  Transmission Date: 20221027
  Serious: Yes (Hospitalization)
  Sender: FDA-Public Use
  Company Number: GR-ABBVIE-22K-066-4456329-00

PATIENT
  Age: 68 Year
  Sex: Female

DRUGS (2)
  1. CARBIDOPA\LEVODOPA [Suspect]
     Active Substance: CARBIDOPA\LEVODOPA
     Indication: Parkinson^s disease
     Route: 050
     Dates: start: 20200525
  2. CARBIDOPA\LEVODOPA [Suspect]
     Active Substance: CARBIDOPA\LEVODOPA
     Dosage: MORNING DOSE: 9 ML; CONTINUOUS RATE: 3.6 ML/H; EXTRA DOSE: 3 ML
     Route: 050

REACTIONS (6)
  - Hypotension [Unknown]
  - Faeces discoloured [Unknown]
  - Gastric ulcer [Not Recovered/Not Resolved]
  - Medication error [Recovered/Resolved]
  - Gastrointestinal tube insertion [Unknown]
  - Device issue [Unknown]

NARRATIVE: CASE EVENT DATE: 20210420
